APPROVED DRUG PRODUCT: TIZANIDINE HYDROCHLORIDE
Active Ingredient: TIZANIDINE HYDROCHLORIDE
Strength: EQ 2MG BASE
Dosage Form/Route: TABLET;ORAL
Application: A076282 | Product #001
Applicant: AUROBINDO PHARMA USA INC
Approved: Dec 16, 2003 | RLD: No | RS: No | Type: DISCN